FAERS Safety Report 17969247 (Version 2)
Quarter: 2022Q2

REPORT INFORMATION
  Report Type: Spontaneous
  Country: US (occurrence: US)
  Receive Date: 20200701
  Receipt Date: 20220614
  Transmission Date: 20220721
  Serious: No
  Sender: FDA-Public Use
  Company Number: US-PFM-2019-13599

PATIENT
  Sex: Female
  Weight: 8.857 kg

DRUGS (1)
  1. HEMANGEOL [Suspect]
     Active Substance: PROPRANOLOL HYDROCHLORIDE
     Indication: Infantile haemangioma
     Dosage: 2.3 ML, BID (2/DAY)
     Route: 048
     Dates: start: 20190321

REACTIONS (4)
  - Hypokinesia [Unknown]
  - Sleep terror [Unknown]
  - Off label use [Unknown]
  - Product use issue [Unknown]
